FAERS Safety Report 9011097 (Version 1)
Quarter: 2013Q1

REPORT INFORMATION
  Report Type: Spontaneous
  Country: US (occurrence: US)
  Receive Date: 20130109
  Receipt Date: 20130109
  Transmission Date: 20140127
  Serious: No
  Sender: FDA-Public Use
  Company Number: US-009507513-1301USA001768

PATIENT
  Age: 24 Year
  Sex: Female
  Weight: 70.3 kg

DRUGS (1)
  1. NUVARING [Suspect]
     Indication: CONTRACEPTION
     Dosage: 1 RING EVERY 3 WEEKS FOLLOWED BY A WEEK FREE
     Route: 067
     Dates: start: 201205

REACTIONS (2)
  - Device expulsion [Unknown]
  - Product quality issue [Unknown]
